FAERS Safety Report 8286953-2 (Version None)
Quarter: 2012Q2

REPORT INFORMATION
  Report Type: 
  Country: None (occurrence: None)
  Receive Date: 20120416
  Receipt Date: 20120329
  Transmission Date: 20120825
  Serious: No
  Sender: FDA-Public Use
  Company Number: US-ROXANE LABORATORIES, INC.-2012-RO-00692RO

PATIENT
  Age: 41 Year
  Sex: Male

DRUGS (5)
  1. TYLENOL (CAPLET) [Concomitant]
  2. OXYMORPHONE HYDROCHLORIDE [Suspect]
     Indication: BREAKTHROUGH PAIN
     Route: 048
  3. KLONOPIN [Concomitant]
  4. OXYMORPHONE HYDROCHLORIDE [Suspect]
     Indication: PAIN
  5. MERCAPTOPURINE [Concomitant]

REACTIONS (1)
  - DRUG INEFFECTIVE [None]
